FAERS Safety Report 8916497 (Version 2)
Quarter: 2012Q4

REPORT INFORMATION
  Report Type: 
  Country: US (occurrence: US)
  Receive Date: 20121120
  Receipt Date: 20121129
  Transmission Date: 20130627
  Serious: Yes (Death, Other)
  Sender: FDA-Public Use
  Company Number: US-GENZYME-CERZ-1002705

PATIENT
  Age: 0 Year
  Sex: Male

DRUGS (1)
  1. CEREZYME [Suspect]
     Indication: GAUCHER^S DISEASE
     Dosage: 800 U, qw
     Route: 042
     Dates: start: 20120810, end: 20121001

REACTIONS (3)
  - Death [Fatal]
  - Respiratory distress [Unknown]
  - Cyanosis [Unknown]
